FAERS Safety Report 15018197 (Version 1)
Quarter: 2018Q2

REPORT INFORMATION
  Report Type: Spontaneous
  Country: DE (occurrence: DE)
  Receive Date: 20180615
  Receipt Date: 20180615
  Transmission Date: 20180711
  Serious: Yes (Hospitalization)
  Sender: FDA-Public Use
  Company Number: DE-TEVA-2018-DE-907591

PATIENT
  Age: 89 Year
  Sex: Female

DRUGS (6)
  1. TORASEMID [Suspect]
     Active Substance: TORSEMIDE
     Dosage: 20 MG, 2-2-0-0
     Route: 065
  2. FERRO SANOL [Concomitant]
     Active Substance: FERROUS GLYCINE SULFATE
     Dosage: 1-0-0-0
     Route: 065
  3. METOPROLOL. [Concomitant]
     Active Substance: METOPROLOL
     Dosage: 47.5 MG, 0.5-0-0-0
     Route: 065
  4. RAMIPRIL. [Concomitant]
     Active Substance: RAMIPRIL
     Dosage: 2.5 MG, 0-0-1-0
     Route: 065
  5. XIPAMIDE [Suspect]
     Active Substance: XIPAMIDE
     Dosage: 20 MG, 2-0-0-0
     Route: 065
  6. ACETYLSALICYLSAEURE [Concomitant]
     Active Substance: ASPIRIN
     Dosage: 100 MG, 1-0-0-0
     Route: 065

REACTIONS (5)
  - Dizziness [Unknown]
  - Weight decreased [Unknown]
  - Dehydration [Unknown]
  - Drug prescribing error [Unknown]
  - Drug prescribing error [Unknown]

NARRATIVE: CASE EVENT DATE: 20160225
